FAERS Safety Report 23510121 (Version 3)
Quarter: 2024Q2

REPORT INFORMATION
  Report Type: Spontaneous
  Country: PE (occurrence: PE)
  Receive Date: 20240211
  Receipt Date: 20240414
  Transmission Date: 20240717
  Serious: Yes (Death, Hospitalization, Other)
  Sender: FDA-Public Use
  Company Number: PE-JNJFOC-20240225760

PATIENT
  Age: 52 Year
  Sex: Female

DRUGS (6)
  1. TRABECTEDIN [Suspect]
     Active Substance: TRABECTEDIN
     Indication: Liposarcoma recurrent
     Route: 042
     Dates: start: 20231206, end: 20231206
  2. TRABECTEDIN [Suspect]
     Active Substance: TRABECTEDIN
     Route: 042
     Dates: start: 20240103, end: 20240103
  3. GRANISETRON [Concomitant]
     Active Substance: GRANISETRON
  4. ESOMEPRAZOLE [Concomitant]
     Active Substance: ESOMEPRAZOLE
  5. METOCLOPRAMIDE [Concomitant]
     Active Substance: METOCLOPRAMIDE
  6. DISLEP [Concomitant]

REACTIONS (13)
  - Malignant neoplasm progression [Fatal]
  - Eastern Cooperative Oncology Group performance status worsened [Fatal]
  - Cancer pain [Fatal]
  - Neoplasm progression [Fatal]
  - Mallory-Weiss syndrome [Unknown]
  - Nausea [Unknown]
  - Vomiting [Unknown]
  - Dehydration [Not Recovered/Not Resolved]
  - Transaminases increased [Unknown]
  - Upper gastrointestinal haemorrhage [Unknown]
  - Haematemesis [Unknown]
  - Pneumonia [Unknown]
  - Oliguria [Not Recovered/Not Resolved]

NARRATIVE: CASE EVENT DATE: 20231201
